FAERS Safety Report 24583742 (Version 1)
Quarter: 2024Q4

REPORT INFORMATION
  Report Type: Spontaneous
  Country: CN (occurrence: CN)
  Receive Date: 20241106
  Receipt Date: 20241106
  Transmission Date: 20250114
  Serious: Yes (Hospitalization, Other)
  Sender: JOHNSON AND JOHNSON
  Company Number: CN-JNJFOC-20241105439

PATIENT
  Age: 20 Year
  Sex: Male
  Weight: 67 kg

DRUGS (2)
  1. RISPERDAL [Suspect]
     Active Substance: RISPERIDONE
     Indication: Schizotypal personality disorder
     Route: 048
     Dates: start: 20241009, end: 20241027
  2. AMISULPRIDE [Suspect]
     Active Substance: AMISULPRIDE
     Indication: Schizotypal personality disorder
     Route: 048
     Dates: start: 20241009, end: 20241030

REACTIONS (2)
  - Hyperprolactinaemia [Recovered/Resolved]
  - Breast pain [Recovered/Resolved]

NARRATIVE: CASE EVENT DATE: 20241023
